FAERS Safety Report 8905185 (Version 1)
Quarter: 2012Q4

REPORT INFORMATION
  Report Type: 
  Country: US (occurrence: US)
  Receive Date: 20121109
  Receipt Date: 20121109
  Transmission Date: 20130627
  Serious: Yes (Death)
  Sender: FDA-Public Use
  Company Number: US-ASTRAZENECA-2012SE84535

PATIENT
  Age: 62 Year
  Sex: Male

DRUGS (2)
  1. BRILINTA [Suspect]
     Route: 048
     Dates: end: 20121101
  2. ASPIRIN [Concomitant]

REACTIONS (3)
  - Myocardial infarction [Fatal]
  - Dyspnoea [Unknown]
  - Drug dose omission [Fatal]
